FAERS Safety Report 13661789 (Version 1)
Quarter: 2017Q2

REPORT INFORMATION
  Report Type: Report from Study
  Country: US (occurrence: US)
  Receive Date: 20170616
  Receipt Date: 20170616
  Transmission Date: 20170830
  Serious: Yes (Hospitalization, Other)
  Sender: FDA-Public Use
  Company Number: US-APOPHARMA-2017AP012795

PATIENT
  Sex: Female
  Weight: 34 kg

DRUGS (1)
  1. FERRIPROX [Suspect]
     Active Substance: DEFERIPRONE
     Indication: SPINOCEREBELLAR ATAXIA
     Dosage: 7 MG/KG, TID
     Route: 048
     Dates: start: 20131113, end: 20170420

REACTIONS (1)
  - Seizure [Recovered/Resolved]
